FAERS Safety Report 24809611 (Version 1)
Quarter: 2025Q1

REPORT INFORMATION
  Report Type: Spontaneous
  Country: CN (occurrence: CN)
  Receive Date: 20250106
  Receipt Date: 20250106
  Transmission Date: 20250409
  Serious: Yes (Other)
  Sender: MYLAN
  Company Number: CN-MYLANLABS-2025M1000286

PATIENT
  Age: 36 Year
  Sex: Female
  Weight: 55 kg

DRUGS (2)
  1. ZOLOFT [Suspect]
     Active Substance: SERTRALINE HYDROCHLORIDE
     Indication: Self-injurious ideation
     Dosage: 14 DOSAGE FORM, QD (14 TABLETS)
     Route: 048
     Dates: start: 20241101, end: 20241101
  2. OXAZEPAM [Suspect]
     Active Substance: OXAZEPAM
     Indication: Self-injurious ideation
     Dosage: 14 DOSAGE FORM, QD (14 TABLETS)
     Route: 048
     Dates: start: 20241101, end: 20241101

REACTIONS (1)
  - Toxicity to various agents [Recovering/Resolving]

NARRATIVE: CASE EVENT DATE: 20241101
